FAERS Safety Report 18700669 (Version 1)
Quarter: 2021Q1

REPORT INFORMATION
  Report Type: Spontaneous
  Country: US (occurrence: US)
  Receive Date: 20210104
  Receipt Date: 20210104
  Transmission Date: 20210419
  Serious: No
  Sender: FDA-Public Use
  Company Number: None

PATIENT
  Age: 49 Year
  Sex: Female
  Weight: 72 kg

DRUGS (10)
  1. DIM [Concomitant]
  2. ESSURE IMPLANTS [Concomitant]
  3. CEPHALEXIN 500MG [Suspect]
     Active Substance: CEPHALEXIN
     Indication: URINARY TRACT INFECTION
     Dosage: ?          QUANTITY:10 CAPSULE(S);?
     Route: 048
     Dates: start: 20210103, end: 20210104
  4. VITAMIN D [Concomitant]
     Active Substance: VITAMIN D NOS
  5. NIACIN. [Concomitant]
     Active Substance: NIACIN
  6. ESTROVEN [Concomitant]
     Active Substance: DIETARY SUPPLEMENT
  7. ADULT MULTIVITAMIN [Concomitant]
  8. GLYCOSAMIN [Concomitant]
  9. CALCIUM [Concomitant]
     Active Substance: CALCIUM
  10. WELLBUTRIN [Concomitant]
     Active Substance: BUPROPION HYDROCHLORIDE

REACTIONS (4)
  - Ear pruritus [None]
  - Erythema [None]
  - Pruritus [None]
  - Feeling hot [None]

NARRATIVE: CASE EVENT DATE: 20210103
